FAERS Safety Report 4269436-6 (Version None)
Quarter: 2004Q1

REPORT INFORMATION
  Report Type: 
  Country: None (occurrence: None)
  Receive Date: 20040109
  Receipt Date: 20040106
  Transmission Date: 20041129
  Serious: Yes (Death)
  Sender: FDA-Public Use
  Company Number: 204057

PATIENT
  Age: 62 Year
  Sex: Female

DRUGS (1)
  1. RITUXAN(RITUXIMAB) CONC FOR INFUSION RITUXAN(RITUXIMAB)CONC FOR SOLUTI [Suspect]
     Indication: LYMPHOMA

REACTIONS (1)
  - HEPATIC CIRRHOSIS [None]
